FAERS Safety Report 16362963 (Version 1)
Quarter: 2019Q2

REPORT INFORMATION
  Report Type: Spontaneous
  Country: US (occurrence: US)
  Receive Date: 20190528
  Receipt Date: 20190528
  Transmission Date: 20190711
  Serious: Yes (Other)
  Sender: FDA-Public Use
  Company Number: US-JNJFOC-20190524357

PATIENT
  Sex: Female
  Weight: 51.26 kg

DRUGS (3)
  1. ELMIRON [Suspect]
     Active Substance: PENTOSAN POLYSULFATE SODIUM
     Indication: CYSTITIS INTERSTITIAL
     Route: 048
     Dates: start: 1997, end: 1997
  2. ELMIRON [Suspect]
     Active Substance: PENTOSAN POLYSULFATE SODIUM
     Indication: CYSTITIS INTERSTITIAL
     Route: 048
     Dates: end: 1995
  3. ELMIRON [Suspect]
     Active Substance: PENTOSAN POLYSULFATE SODIUM
     Indication: CYSTITIS INTERSTITIAL
     Route: 048
     Dates: start: 201708, end: 201708

REACTIONS (11)
  - Cystitis interstitial [Unknown]
  - Pain [Not Recovered/Not Resolved]
  - Exposure during pregnancy [Recovered/Resolved]
  - Feeding disorder [Unknown]
  - Rotator cuff syndrome [Recovered/Resolved]
  - Weight decreased [Unknown]
  - Alopecia [Recovered/Resolved]
  - Postpartum haemorrhage [Unknown]
  - Flatulence [Recovered/Resolved]
  - Eclampsia [Unknown]
  - Insomnia [Unknown]

NARRATIVE: CASE EVENT DATE: 1995
